FAERS Safety Report 13869260 (Version 4)
Quarter: 2017Q4

REPORT INFORMATION
  Report Type: Spontaneous
  Country: US (occurrence: US)
  Receive Date: 20170815
  Receipt Date: 20171206
  Transmission Date: 20180320
  Serious: Yes (Hospitalization, Disabling, Other)
  Sender: FDA-Public Use
  Company Number: US-009507513-1708USA006111

PATIENT
  Sex: Female
  Weight: 255 kg

DRUGS (2)
  1. NUVARING [Suspect]
     Active Substance: ETHINYL ESTRADIOL\ETONOGESTREL
     Dosage: 1 DF, QM
     Route: 067
     Dates: start: 201312, end: 201509
  2. NUVARING [Suspect]
     Active Substance: ETHINYL ESTRADIOL\ETONOGESTREL
     Indication: CONTRACEPTION
     Dosage: 1 DF, QM
     Route: 067
     Dates: start: 201312, end: 201509

REACTIONS (23)
  - Bipolar disorder [Unknown]
  - Snoring [Unknown]
  - Asthma [Unknown]
  - Vaginal haemorrhage [Recovering/Resolving]
  - Pulmonary embolism [Recovered/Resolved]
  - Iron deficiency anaemia [Unknown]
  - Presyncope [Recovered/Resolved]
  - Headache [Recovered/Resolved]
  - Deep vein thrombosis [Recovered/Resolved]
  - Hyperhidrosis [Unknown]
  - Oropharyngeal pain [Unknown]
  - Asthenia [Unknown]
  - Fatigue [Unknown]
  - Haemorrhagic anaemia [Unknown]
  - Haematuria [Recovered/Resolved]
  - Anxiety [Unknown]
  - Muscle strain [Recovering/Resolving]
  - Obesity [Unknown]
  - Chills [Unknown]
  - Abscess [Unknown]
  - Rhinitis allergic [Unknown]
  - Gastrooesophageal reflux disease [Unknown]
  - Hyperhomocysteinaemia [Unknown]

NARRATIVE: CASE EVENT DATE: 2014
